FAERS Safety Report 6995959-2 (Version None)
Quarter: 2010Q3

REPORT INFORMATION
  Report Type: 
  Country: None (occurrence: None)
  Receive Date: 20100918
  Receipt Date: 20081125
  Transmission Date: 20110219
  Serious: No
  Sender: FDA-Public Use
  Company Number: US-WYE-H06969808

PATIENT
  Sex: Male

DRUGS (2)
  1. EFFEXOR XR [Suspect]
     Indication: DEPRESSION
     Route: 048
     Dates: start: 20070101, end: 20081101
  2. EFFEXOR XR [Suspect]
     Dosage: TAPERED DOSE
     Route: 048
     Dates: start: 20081101, end: 20081122

REACTIONS (3)
  - DRUG WITHDRAWAL SYNDROME [None]
  - PARAESTHESIA [None]
  - PHOTOSENSITIVITY REACTION [None]
